FAERS Safety Report 4900475-5 (Version None)
Quarter: 2006Q1

REPORT INFORMATION
  Report Type: 
  Country: None (occurrence: None)
  Receive Date: 20060203
  Receipt Date: 20050216
  Transmission Date: 20060701
  Serious: Yes (Disabling)
  Sender: FDA-Public Use
  Company Number: AU-MERCK-0502AUS00116

PATIENT
  Age: 67 Year
  Sex: Female

DRUGS (2)
  1. ZETIA [Suspect]
     Indication: HYPERCHOLESTEROLAEMIA
     Route: 048
     Dates: start: 20041201, end: 20050124
  2. ZETIA [Suspect]
     Route: 048
     Dates: start: 20041206, end: 20041201

REACTIONS (4)
  - DIFFICULTY IN WALKING [None]
  - DRUG ADMINISTRATION ERROR [None]
  - MUSCLE ATROPHY [None]
  - MUSCULAR WEAKNESS [None]
